FAERS Safety Report 24273519 (Version 2)
Quarter: 2024Q3

REPORT INFORMATION
  Report Type: Spontaneous
  Country: DE (occurrence: DE)
  Receive Date: 20240902
  Receipt Date: 20240909
  Transmission Date: 20241016
  Serious: Yes (Hospitalization)
  Sender: PFIZER
  Company Number: DE-PFIZER INC-202400246182

PATIENT
  Age: 51 Year
  Sex: Male

DRUGS (1)
  1. LORLATINIB [Suspect]
     Active Substance: LORLATINIB
     Indication: Non-small cell lung cancer
     Dosage: 100 MG, DAILY
     Dates: start: 20240229

REACTIONS (2)
  - Joint noise [Not Recovered/Not Resolved]
  - Spinal pain [Not Recovered/Not Resolved]

NARRATIVE: CASE EVENT DATE: 20240430
